FAERS Safety Report 21776688 (Version 2)
Quarter: 2023Q1

REPORT INFORMATION
  Report Type: Spontaneous
  Country: TW (occurrence: TW)
  Receive Date: 20221226
  Receipt Date: 20230111
  Transmission Date: 20230418
  Serious: Yes (Other)
  Sender: FDA-Public Use
  Company Number: TW-SA-2022SA515202

PATIENT
  Age: 8 Year
  Sex: Male

DRUGS (5)
  1. ANTI-THYMOCYTE GLOBULIN (RABBIT) NOS [Suspect]
     Active Substance: LAPINE T-LYMPHOCYTE IMMUNE GLOBULIN
     Indication: Aplastic anaemia
     Dosage: 2.5 MG/KG, QD
     Route: 042
     Dates: start: 20191024, end: 20191028
  2. CYCLOPHOSPHAMIDE [Suspect]
     Active Substance: CYCLOPHOSPHAMIDE
     Indication: Prophylaxis against graft versus host disease
     Dosage: 50 MG/KG, QD
     Route: 042
     Dates: start: 20200821, end: 20200822
  3. CYCLOSPORINE [Suspect]
     Active Substance: CYCLOSPORINE
     Indication: Prophylaxis against graft versus host disease
     Dosage: UNK
     Dates: start: 20200823, end: 20210520
  4. MYCOPHENOLATE MOFETIL [Suspect]
     Active Substance: MYCOPHENOLATE MOFETIL
     Indication: Prophylaxis against graft versus host disease
     Dosage: 500 MG, BID
     Route: 048
     Dates: start: 20200822, end: 20200908
  5. ENTECAVIR [Concomitant]
     Active Substance: ENTECAVIR
     Indication: Antiviral prophylaxis
     Dosage: UNK
     Dates: start: 2020

REACTIONS (7)
  - Basedow^s disease [Recovered/Resolved]
  - Hyperthyroidism [Recovered/Resolved]
  - Tachycardia [Recovered/Resolved]
  - Restlessness [Recovered/Resolved]
  - Speech disorder [Recovered/Resolved]
  - Poor quality sleep [Recovered/Resolved]
  - Orbital swelling [Recovered/Resolved]

NARRATIVE: CASE EVENT DATE: 20210618
